FAERS Safety Report 10679232 (Version 2)
Quarter: 2015Q1

REPORT INFORMATION
  Report Type: Spontaneous
  Country: US (occurrence: US)
  Receive Date: 20141229
  Receipt Date: 20150105
  Transmission Date: 20150720
  Serious: Yes (Hospitalization)
  Sender: FDA-Public Use
  Company Number: US-BAYER-2014-187660

PATIENT
  Age: 17 Year
  Sex: Male

DRUGS (1)
  1. KOGENATE FS [Suspect]
     Active Substance: ANTIHEMOPHILIC FACTOR, HUMAN RECOMBINANT
     Indication: FACTOR VIII DEFICIENCY
     Dosage: 3000 UNITS FOR 2 DAYS THEN EVERY 24 HRS AS NEEDED FOR BLEEDING

REACTIONS (4)
  - Limb injury [None]
  - Contusion [Recovering/Resolving]
  - Road traffic accident [None]
  - Wisdom teeth removal [None]

NARRATIVE: CASE EVENT DATE: 20141124
